FAERS Safety Report 13028400 (Version 2)
Quarter: 2017Q1

REPORT INFORMATION
  Report Type: Spontaneous
  Country: US (occurrence: US)
  Receive Date: 20161214
  Receipt Date: 20170322
  Transmission Date: 20170428
  Serious: No
  Sender: FDA-Public Use
  Company Number: US-EISAI MEDICAL RESEARCH-EC-2016-023125

PATIENT
  Sex: Male

DRUGS (1)
  1. LENVIMA [Suspect]
     Active Substance: LENVATINIB
     Indication: THYROID CANCER
     Route: 048

REACTIONS (2)
  - Dysgeusia [Not Recovered/Not Resolved]
  - Weight decreased [Not Recovered/Not Resolved]
